FAERS Safety Report 16528935 (Version 4)
Quarter: 2019Q3

REPORT INFORMATION
  Report Type: Report from Study
  Country: DO (occurrence: DO)
  Receive Date: 20190703
  Receipt Date: 20190828
  Transmission Date: 20191004
  Serious: Yes (Other)
  Sender: FDA-Public Use
  Company Number: PHHY2018DO028827

PATIENT
  Age: 44 Year
  Sex: Male

DRUGS (1)
  1. GILENYA [Suspect]
     Active Substance: FINGOLIMOD HYDROCHLORIDE
     Indication: PRODUCT USED FOR UNKNOWN INDICATION
     Dosage: 0.5 MG, QD
     Route: 065
     Dates: start: 201809

REACTIONS (20)
  - Dizziness [Unknown]
  - Hemiparesis [Unknown]
  - Hepatic enzyme decreased [Unknown]
  - Dyskinesia [Unknown]
  - Pain in extremity [Unknown]
  - Asthenia [Unknown]
  - Optic nerve disorder [Unknown]
  - Headache [Recovering/Resolving]
  - Fatigue [Unknown]
  - Halo vision [Unknown]
  - Eye disorder [Unknown]
  - Lacrimation increased [Unknown]
  - Spinal pain [Unknown]
  - Malaise [Unknown]
  - Skin lesion [Recovered/Resolved]
  - Chest pain [Unknown]
  - Liver function test increased [Unknown]
  - Sensory loss [Unknown]
  - Temperature intolerance [Unknown]
  - Eye pain [Unknown]
